FAERS Safety Report 7809753-3 (Version None)
Quarter: 2011Q4

REPORT INFORMATION
  Report Type: 
  Country: None (occurrence: None)
  Receive Date: 20111012
  Receipt Date: 20110930
  Transmission Date: 20120403
  Serious: Yes (Hospitalization, Other)
  Sender: FDA-Public Use
  Company Number: US-ELI_LILLY_AND_COMPANY-US201110000277

PATIENT
  Sex: Female

DRUGS (9)
  1. FILGRASTIM [Concomitant]
     Indication: UTERINE LEIOMYOSARCOMA
     Dosage: 150 UG/M2, UNK
     Route: 058
     Dates: start: 20110922
  2. NEURONTIN [Concomitant]
  3. BEVACIZUMAB [Concomitant]
     Indication: UTERINE LEIOMYOSARCOMA
     Dosage: 15 MG/KG, UNK
     Route: 042
     Dates: start: 20110922
  4. NEUPOGEN [Concomitant]
     Indication: UTERINE LEIOMYOSARCOMA
     Dosage: UNK
     Dates: start: 20100922
  5. DUONEB [Concomitant]
  6. SYNTHROID [Concomitant]
  7. DOCETAXEL [Concomitant]
     Indication: UTERINE LEIOMYOSARCOMA
     Dosage: 75 MG/M2, UNK
     Route: 042
     Dates: start: 20100922
  8. CEFAZOLIN [Concomitant]
  9. GEMZAR [Suspect]
     Indication: UTERINE LEIOMYOSARCOMA
     Dosage: 900 MG/M2, ON DAYS 1 AND 8 OF CYCLE
     Route: 042
     Dates: start: 20100922

REACTIONS (8)
  - PYREXIA [None]
  - DEVICE RELATED INFECTION [None]
  - LUNG INFECTION [None]
  - FALL [None]
  - FEMUR FRACTURE [None]
  - SOFT TISSUE INFECTION [None]
  - HIP FRACTURE [None]
  - LACERATION [None]
